FAERS Safety Report 19698776 (Version 4)
Quarter: 2022Q1

REPORT INFORMATION
  Report Type: Spontaneous
  Country: JP (occurrence: JP)
  Receive Date: 20210813
  Receipt Date: 20220302
  Transmission Date: 20220424
  Serious: Yes (Hospitalization)
  Sender: FDA-Public Use
  Company Number: JP-MTPC-MTPC2021-0019164

PATIENT
  Age: 22 Month
  Sex: Female

DRUGS (2)
  1. CANAGLIFLOZIN [Suspect]
     Active Substance: CANAGLIFLOZIN
     Indication: Accidental exposure to product
     Dosage: 400 MILLIGRAM, QD
     Route: 048
     Dates: start: 20210804, end: 20210804
  2. METGLUCO [Suspect]
     Active Substance: METFORMIN HYDROCHLORIDE
     Indication: Accidental exposure to product
     Dosage: 1000 MILLIGRAM, QD
     Route: 048
     Dates: start: 20210804, end: 20210804

REACTIONS (3)
  - Lactic acidosis [Recovered/Resolved]
  - Polyuria [Recovered/Resolved]
  - Accidental overdose [Unknown]

NARRATIVE: CASE EVENT DATE: 20210804
